FAERS Safety Report 8556538-9 (Version None)
Quarter: 2012Q3

REPORT INFORMATION
  Report Type: 
  Country: None (occurrence: None)
  Receive Date: 20120801
  Receipt Date: 20120713
  Transmission Date: 20120928
  Serious: No
  Sender: FDA-Public Use
  Company Number: US-009507513-2012SP034053

PATIENT

DRUGS (2)
  1. IMPLANON [Suspect]
     Indication: MENSTRUATION IRREGULAR
     Dosage: UNK
     Route: 059
     Dates: start: 20111213, end: 20120711
  2. IMPLANON [Suspect]
     Indication: DYSMENORRHOEA

REACTIONS (2)
  - AMENORRHOEA [None]
  - OFF LABEL USE [None]
